FAERS Safety Report 5584957-1 (Version None)
Quarter: 2008Q1

REPORT INFORMATION
  Report Type: 
  Country: None (occurrence: None)
  Receive Date: 20080104
  Receipt Date: 20071227
  Transmission Date: 20080703
  Serious: Yes (Hospitalization)
  Sender: FDA-Public Use
  Company Number: 2007BI027258

PATIENT
  Age: 10 Year
  Sex: Female

DRUGS (3)
  1. AVONEX [Suspect]
     Dosage: 7.5 UG; QW; IM, 15 UG; QW; IM, 22.5 UG; QW; IM, 30 UG; QW; IM
     Route: 030
     Dates: end: 20071201
  2. AVONEX [Suspect]
     Dosage: 7.5 UG; QW; IM, 15 UG; QW; IM, 22.5 UG; QW; IM, 30 UG; QW; IM
     Route: 030
     Dates: start: 20070831
  3. AVONEX [Suspect]
     Dosage: 7.5 UG; QW; IM, 15 UG; QW; IM, 22.5 UG; QW; IM, 30 UG; QW; IM
     Route: 030
     Dates: start: 20071220

REACTIONS (3)
  - EYE PAIN [None]
  - EYELID PTOSIS [None]
  - VISION BLURRED [None]
